FAERS Safety Report 8286572-8 (Version None)
Quarter: 2012Q2

REPORT INFORMATION
  Report Type: 
  Country: None (occurrence: None)
  Receive Date: 20120416
  Receipt Date: 20120403
  Transmission Date: 20120825
  Serious: Yes (Other)
  Sender: FDA-Public Use
  Company Number: US-SANOFI-AVENTIS-2012SA023086

PATIENT
  Age: 67 Year
  Sex: Female

DRUGS (4)
  1. LANTUS [Suspect]
     Indication: TYPE 2 DIABETES MELLITUS
     Dosage: DOSE:16 UNIT(S)
     Route: 058
  2. SOLOSTAR [Suspect]
  3. LANTUS [Suspect]
     Dosage: DOSE:40 UNIT(S)
     Route: 058
  4. SOLOSTAR [Suspect]
     Indication: TYPE 2 DIABETES MELLITUS

REACTIONS (1)
  - HYSTERECTOMY [None]
